FAERS Safety Report 10062902 (Version 1)
Quarter: 2014Q2

REPORT INFORMATION
  Report Type: Spontaneous
  Country: US (occurrence: US)
  Receive Date: 20140407
  Receipt Date: 20140407
  Transmission Date: 20141212
  Serious: Yes (Other)
  Sender: FDA-Public Use
  Company Number: US-ABBVIE-14P-163-1218904-00

PATIENT
  Sex: 0
  Weight: 57.66 kg

DRUGS (5)
  1. LUPRON DEPOT [Suspect]
     Indication: ENDOMETRIOSIS
  2. LUPRON DEPOT [Suspect]
     Indication: ENDOMETRIOSIS
  3. NORCO [Concomitant]
     Indication: PAIN
  4. NORETHINDRONE [Concomitant]
     Indication: HOT FLUSH
  5. SYNTHROID [Concomitant]
     Indication: HYPOTHYROIDISM
     Dates: start: 2005

REACTIONS (9)
  - Pelvic adhesions [Recovering/Resolving]
  - Endometriosis [Not Recovered/Not Resolved]
  - Peritoneal adhesions [Recovering/Resolving]
  - Osteopenia [Not Recovered/Not Resolved]
  - Weight increased [Recovered/Resolved]
  - Weight decreased [Recovered/Resolved]
  - Hot flush [Not Recovered/Not Resolved]
  - Mood swings [Not Recovered/Not Resolved]
  - Stress [Recovered/Resolved]
